FAERS Safety Report 8582607-3 (Version None)
Quarter: 2012Q3

REPORT INFORMATION
  Report Type: 
  Country: None (occurrence: None)
  Receive Date: 20120809
  Receipt Date: 20120803
  Transmission Date: 20120928
  Serious: Yes (Hospitalization)
  Sender: FDA-Public Use
  Company Number: US-AMGEN-USACT2012048936

PATIENT
  Age: 77 Year
  Sex: Male
  Weight: 75.4 kg

DRUGS (4)
  1. PANITUMUMAB [Suspect]
     Indication: OESOPHAGEAL CARCINOMA
     Dosage: 6 MG/KG, Q2WK
     Route: 041
     Dates: start: 20120327
  2. FLUOROURACIL [Concomitant]
     Indication: OESOPHAGEAL CARCINOMA
     Dosage: UNK
     Route: 042
     Dates: start: 20120327, end: 20120515
  3. OXALIPLATIN [Concomitant]
     Indication: OESOPHAGEAL CARCINOMA
     Dosage: 85 MG/M2, QWK
     Route: 041
     Dates: start: 20120327
  4. SUCRALFATE [Concomitant]

REACTIONS (4)
  - ODYNOPHAGIA [None]
  - HYPOPHAGIA [None]
  - AGEUSIA [None]
  - HYPERNATRAEMIA [None]
